FAERS Safety Report 9599434 (Version 1)
Quarter: 2013Q4

REPORT INFORMATION
  Report Type: Spontaneous
  Country: US (occurrence: US)
  Receive Date: 20131004
  Receipt Date: 20131004
  Transmission Date: 20140711
  Serious: No
  Sender: FDA-Public Use
  Company Number: US-AMGEN-USASP2013029437

PATIENT
  Age: 49 Year
  Sex: Female
  Weight: 76.19 kg

DRUGS (7)
  1. ENBREL [Suspect]
     Indication: PRODUCT USED FOR UNKNOWN INDICATION
     Dosage: 50 MG, QWK
     Route: 058
  2. INDOMETHACIN                       /00003801/ [Concomitant]
     Dosage: 75 MG, UNK
     Route: 048
  3. HYZAAR [Concomitant]
     Dosage: 100-12.5 UNK
     Route: 048
  4. OMEPRAZOLE [Concomitant]
     Dosage: 40 MG, UNK
     Route: 048
  5. FIBER [Concomitant]
     Dosage: 0.52 G, UNK
     Route: 048
  6. MULTIVITAMINS, PLAIN [Concomitant]
     Dosage: UNK
     Route: 048
  7. PREMPRO [Concomitant]
     Dosage: 625-2.5 UNK
     Route: 048

REACTIONS (2)
  - Injection site reaction [Recovered/Resolved]
  - Injection site vesicles [Recovered/Resolved]
